FAERS Safety Report 11347406 (Version 1)
Quarter: 2015Q3

REPORT INFORMATION
  Report Type: Spontaneous
  Country: US (occurrence: US)
  Receive Date: 20150803
  Receipt Date: 20150803
  Transmission Date: 20151125
  Serious: No
  Sender: FDA-Public Use
  Company Number: US-ELI_LILLY_AND_COMPANY-US201106001076

PATIENT
  Age: 63 Year
  Sex: Female

DRUGS (4)
  1. ZYPREXA [Suspect]
     Active Substance: OLANZAPINE
  2. ZYPREXA [Suspect]
     Active Substance: OLANZAPINE
     Dosage: UNK UNK, QD
  3. ZYPREXA [Suspect]
     Active Substance: OLANZAPINE
     Indication: SCHIZOPHRENIA
     Dosage: 30 MG, QD
  4. ZYPREXA [Suspect]
     Active Substance: OLANZAPINE

REACTIONS (5)
  - Hallucination [Recovered/Resolved]
  - Prescribed overdose [Not Recovered/Not Resolved]
  - Drug ineffective [Unknown]
  - Feeling abnormal [Unknown]
  - Malaise [Unknown]

NARRATIVE: CASE EVENT DATE: 201101
